FAERS Safety Report 8275365-3 (Version None)
Quarter: 2012Q2

REPORT INFORMATION
  Report Type: 
  Country: None (occurrence: None)
  Receive Date: 20120411
  Receipt Date: 20120409
  Transmission Date: 20120825
  Serious: Yes (Hospitalization, Other)
  Sender: FDA-Public Use
  Company Number: US-BAYER-2012-034449

PATIENT
  Age: 56 Year
  Sex: Female

DRUGS (2)
  1. BETASERON [Suspect]
     Indication: RELAPSING-REMITTING MULTIPLE SCLEROSIS
     Dosage: UNK
     Route: 058
     Dates: start: 20030702, end: 20080115
  2. BETASERON [Suspect]
     Dosage: 8 MIU, QOD
     Route: 058
     Dates: start: 20111208

REACTIONS (4)
  - ATAXIA [None]
  - DIZZINESS [None]
  - FALL [None]
  - ABASIA [None]
